FAERS Safety Report 14426364 (Version 1)
Quarter: 2018Q1

REPORT INFORMATION
  Report Type: Spontaneous
  Country: MX (occurrence: MX)
  Receive Date: 20180123
  Receipt Date: 20180123
  Transmission Date: 20180509
  Serious: Yes (Hospitalization, Other)
  Sender: FDA-Public Use
  Company Number: MX-SA-2018SA013179

PATIENT
  Age: 29 Year
  Sex: Female
  Weight: 55 kg

DRUGS (1)
  1. AUBAGIO [Suspect]
     Active Substance: TERIFLUNOMIDE
     Indication: MULTIPLE SCLEROSIS
     Route: 048
     Dates: start: 20161201, end: 20171028

REACTIONS (4)
  - Placental disorder [Recovering/Resolving]
  - Exposure during pregnancy [Unknown]
  - Abortion spontaneous [Unknown]
  - Vaginal infection [Recovering/Resolving]

NARRATIVE: CASE EVENT DATE: 20171228
